FAERS Safety Report 16932753 (Version 1)
Quarter: 2019Q4

REPORT INFORMATION
  Report Type: Report from Study
  Country: AU (occurrence: AU)
  Receive Date: 20191018
  Receipt Date: 20191018
  Transmission Date: 20200122
  Serious: Yes (Other)
  Sender: FDA-Public Use
  Company Number: AU-BEH-2019107455

PATIENT
  Age: 25 Year
  Sex: Male
  Weight: 112 kg

DRUGS (10)
  1. HIZENTRA [Suspect]
     Active Substance: HUMAN IMMUNOGLOBULIN G
     Dosage: UNK
     Route: 058
     Dates: start: 20190930
  2. PREDNISOLONE. [Concomitant]
     Active Substance: PREDNISOLONE
     Dosage: 40 MILLIGRAM
  3. ENALAPRIL [Concomitant]
     Active Substance: ENALAPRIL
  4. RITUXIMAB. [Concomitant]
     Active Substance: RITUXIMAB
     Dosage: 6 MONTHLY INFUSION
  5. MYCOPHENOLATE [Concomitant]
     Active Substance: MYCOPHENOLIC ACID
     Dosage: 1.5 GRAM, BID
  6. CLEXANE [Concomitant]
     Active Substance: ENOXAPARIN SODIUM
     Dosage: 80 UNK
     Route: 058
  7. PLAQUENIL [Concomitant]
     Active Substance: HYDROXYCHLOROQUINE SULFATE
     Dosage: 400 MICROGRAM
  8. CLARATYNE [Concomitant]
     Active Substance: LORATADINE
     Indication: NASAL CONGESTION
  9. HIZENTRA [Suspect]
     Active Substance: HUMAN IMMUNOGLOBULIN G
     Indication: SYSTEMIC LUPUS ERYTHEMATOSUS
     Dosage: 11 GRAM, QW
     Route: 058
  10. HIZENTRA [Suspect]
     Active Substance: HUMAN IMMUNOGLOBULIN G
     Indication: ANTIPHOSPHOLIPID SYNDROME
     Dosage: 11 GRAM, QW
     Route: 058
     Dates: start: 20190930

REACTIONS (7)
  - Erythema [Recovered/Resolved]
  - Systemic lupus erythematosus rash [Recovered/Resolved]
  - Fatigue [Unknown]
  - No adverse event [Unknown]
  - Skin warm [Recovered/Resolved]
  - Product use in unapproved indication [Unknown]
  - Respiratory tract congestion [Unknown]
